FAERS Safety Report 11292196 (Version 1)
Quarter: 2015Q3

REPORT INFORMATION
  Report Type: Spontaneous
  Country: US (occurrence: None)
  Receive Date: 20150721
  Receipt Date: 20150721
  Transmission Date: 20151125
  Serious: Yes (Disabling)
  Sender: FDA-Public Use
  Company Number: None

PATIENT
  Age: 54 Year
  Sex: Female
  Weight: 99.79 kg

DRUGS (3)
  1. LUNESTA [Concomitant]
     Active Substance: ESZOPICLONE
  2. CELEXA [Concomitant]
     Active Substance: CITALOPRAM HYDROBROMIDE
  3. LEVAQUIN [Suspect]
     Active Substance: LEVOFLOXACIN
     Indication: ANIMAL BITE
     Route: 048

REACTIONS (8)
  - Insomnia [None]
  - Feeling abnormal [None]
  - Eye disorder [None]
  - Ear disorder [None]
  - Rash macular [None]
  - Arthralgia [None]
  - Anal pruritus [None]
  - Arthropathy [None]

NARRATIVE: CASE EVENT DATE: 20070704
